FAERS Safety Report 9789423 (Version 1)
Quarter: 2013Q4

REPORT INFORMATION
  Report Type: Spontaneous
  Country: GB (occurrence: GB)
  Receive Date: 20131231
  Receipt Date: 20131231
  Transmission Date: 20140711
  Serious: Yes (Hospitalization)
  Sender: FDA-Public Use
  Company Number: GB-ABBVIE-13P-167-1182849-00

PATIENT
  Age: 59 Year
  Sex: Male

DRUGS (4)
  1. HUMIRA [Suspect]
     Indication: PSORIASIS
     Dates: start: 201203, end: 20131129
  2. HUMIRA [Suspect]
     Dosage: RECOMMENCED
     Dates: start: 20131213
  3. BENDOFLUMETOZIDE [Concomitant]
     Indication: PRODUCT USED FOR UNKNOWN INDICATION
  4. STATIN [Concomitant]
     Indication: PRODUCT USED FOR UNKNOWN INDICATION

REACTIONS (8)
  - Amnesia [Recovered/Resolved]
  - Dysarthria [Recovered/Resolved]
  - Transient global amnesia [Recovered/Resolved]
  - Hypoaesthesia [Recovered/Resolved]
  - Paraesthesia [Recovered/Resolved]
  - Pulse pressure increased [Recovered/Resolved]
  - Hypertension [Unknown]
  - Sinusitis [Unknown]
